FAERS Safety Report 7292829-X (Version None)
Quarter: 2011Q1

REPORT INFORMATION
  Report Type: 
  Country: None (occurrence: None)
  Receive Date: 20110203
  Receipt Date: 20110118
  Transmission Date: 20110831
  Serious: Yes (Life-Threatening, Hospitalization, Other)
  Sender: FDA-Public Use
  Company Number: 025162

PATIENT
  Sex: Female

DRUGS (8)
  1. METHOTREXATE [Concomitant]
  2. CIMZIA [Suspect]
     Indication: RHEUMATOID ARTHRITIS
     Dosage: 200 MG 1X/2 WEEKS SUBCUTANEOUS
     Route: 058
     Dates: start: 20091119, end: 20101228
  3. FAMOTIDINE [Concomitant]
  4. FOLIC ACID [Concomitant]
  5. PREDNISOLONE [Concomitant]
  6. ALENDRONATE [Concomitant]
  7. TELMISARTAN [Concomitant]
  8. ZALTOPROFEN [Concomitant]

REACTIONS (24)
  - NEUTROPHIL PERCENTAGE INCREASED [None]
  - BLOOD ALKALINE PHOSPHATASE INCREASED [None]
  - BLOOD PRESSURE INCREASED [None]
  - INTRACRANIAL PRESSURE INCREASED [None]
  - HAEMATOCRIT DECREASED [None]
  - BLOOD SODIUM INCREASED [None]
  - GAMMA-GLUTAMYLTRANSFERASE INCREASED [None]
  - HEART RATE INCREASED [None]
  - ACTIVATED PARTIAL THROMBOPLASTIN TIME SHORTENED [None]
  - GLOMERULAR FILTRATION RATE DECREASED [None]
  - LYMPHOCYTE PERCENTAGE DECREASED [None]
  - ALANINE AMINOTRANSFERASE INCREASED [None]
  - PLATELET COUNT INCREASED [None]
  - BLOOD POTASSIUM DECREASED [None]
  - MEAN CELL VOLUME INCREASED [None]
  - C-REACTIVE PROTEIN INCREASED [None]
  - MONOCYTE PERCENTAGE INCREASED [None]
  - BLOOD LACTATE DEHYDROGENASE INCREASED [None]
  - WHITE BLOOD CELL COUNT INCREASED [None]
  - HAEMOGLOBIN DECREASED [None]
  - CEREBRAL HAEMORRHAGE [None]
  - BRAIN MIDLINE SHIFT [None]
  - RED BLOOD CELL COUNT DECREASED [None]
  - ASPARTATE AMINOTRANSFERASE INCREASED [None]
